FAERS Safety Report 7488756-5 (Version None)
Quarter: 2011Q2

REPORT INFORMATION
  Report Type: 
  Country: None (occurrence: None)
  Receive Date: 20110518
  Receipt Date: 20110506
  Transmission Date: 20111010
  Serious: Yes (Other)
  Sender: FDA-Public Use
  Company Number: US-MYLANLABS-2011S1009545

PATIENT
  Sex: Female

DRUGS (3)
  1. ATENOLOL [Suspect]
  2. SYNTHROID [Suspect]
  3. AMLODIPINE BESYLATE [Suspect]
     Indication: BLOOD PRESSURE INCREASED
     Route: 048

REACTIONS (4)
  - VITREOUS DISORDER [None]
  - RENAL ARTERY OCCLUSION [None]
  - VITREOUS FLOATERS [None]
  - PHOTOPSIA [None]
